FAERS Safety Report 15233809 (Version 2)
Quarter: 2018Q3

REPORT INFORMATION
  Report Type: Spontaneous
  Country: BE (occurrence: BE)
  Receive Date: 20180802
  Receipt Date: 20180907
  Transmission Date: 20181010
  Serious: Yes (Death, Hospitalization, Congenital Anomaly, Other)
  Sender: FDA-Public Use
  Company Number: PHHY2001BE003619

PATIENT
  Age: 1 Day
  Sex: Female
  Weight: 2 kg

DRUGS (4)
  1. HYDROCHOROTHIAZIDE [Suspect]
     Active Substance: HYDROCHLOROTHIAZIDE
     Indication: FOETAL EXPOSURE DURING PREGNANCY
     Route: 064
  2. LOSARTAN POTASSIUM. [Suspect]
     Active Substance: LOSARTAN POTASSIUM
     Indication: FOETAL EXPOSURE DURING PREGNANCY
     Route: 064
  3. METOPROLOL. [Suspect]
     Active Substance: METOPROLOL
     Indication: FOETAL EXPOSURE DURING PREGNANCY
     Route: 064
  4. FELODIPINE. [Suspect]
     Active Substance: FELODIPINE
     Indication: FOETAL EXPOSURE DURING PREGNANCY
     Dosage: UNK
     Route: 064

REACTIONS (10)
  - Neonatal anuria [Fatal]
  - Ultrasound kidney abnormal [Fatal]
  - Lung disorder [Unknown]
  - Neonatal respiratory failure [Fatal]
  - Foetal exposure timing unspecified [Fatal]
  - Potter^s syndrome [Fatal]
  - Pulmonary hypertension [Fatal]
  - Limb malformation [Fatal]
  - Neonatal respiratory distress syndrome [Unknown]
  - Exposure during pregnancy [Fatal]
